FAERS Safety Report 9260822 (Version 1)
Quarter: 2013Q2

REPORT INFORMATION
  Report Type: Spontaneous
  Country: US (occurrence: US)
  Receive Date: 20130429
  Receipt Date: 20130429
  Transmission Date: 20140414
  Serious: Yes (Other)
  Sender: FDA-Public Use
  Company Number: US-PFIZER INC-2013131667

PATIENT
  Sex: Female

DRUGS (2)
  1. LYRICA [Suspect]
     Indication: POST HERPETIC NEURALGIA
     Dosage: 75 MG
  2. LYRICA [Suspect]
     Dosage: 50 MG, THIS MORNING

REACTIONS (5)
  - Dizziness [Recovering/Resolving]
  - Agitation [Recovering/Resolving]
  - Sluggishness [Recovering/Resolving]
  - Disturbance in attention [Recovering/Resolving]
  - Hangover [Recovering/Resolving]
